FAERS Safety Report 11049370 (Version 1)
Quarter: 2015Q2

REPORT INFORMATION
  Report Type: Spontaneous
  Country: BR (occurrence: BR)
  Receive Date: 20150420
  Receipt Date: 20150420
  Transmission Date: 20150821
  Serious: Yes (Other)
  Sender: FDA-Public Use
  Company Number: BR-PFIZER INC-2015127683

PATIENT
  Age: 55 Year
  Sex: Female
  Weight: 55 kg

DRUGS (3)
  1. LYRICA [Suspect]
     Active Substance: PREGABALIN
     Indication: NEURALGIA
     Dosage: 75 MG, 2X/DAY
     Route: 048
     Dates: start: 201501
  2. CODEIN [Concomitant]
     Active Substance: CODEINE
     Indication: PAIN
     Dosage: 1 DF, 3X/DAY
     Dates: start: 201501
  3. DEXASON /00016001/ [Concomitant]
     Dosage: 1 DF, DAILY
     Dates: start: 201501

REACTIONS (5)
  - Metastases to bone [Unknown]
  - Abasia [Unknown]
  - Breast cancer [Unknown]
  - Spinal disorder [Unknown]
  - Bedridden [Unknown]

NARRATIVE: CASE EVENT DATE: 2015
